FAERS Safety Report 17269689 (Version 1)
Quarter: 2020Q1

REPORT INFORMATION
  Report Type: Spontaneous
  Country: US (occurrence: US)
  Receive Date: 20200114
  Receipt Date: 20200114
  Transmission Date: 20200409
  Serious: No
  Sender: FDA-Public Use
  Company Number: US-NOVOPROD-694040

PATIENT
  Sex: Female

DRUGS (1)
  1. MACRILEN [Suspect]
     Active Substance: MACIMORELIN
     Indication: PRODUCT USED FOR UNKNOWN INDICATION
     Dosage: 60 MG
     Route: 048

REACTIONS (1)
  - Dysgeusia [Recovered/Resolved]
